FAERS Safety Report 4386849-2 (Version None)
Quarter: 2004Q2

REPORT INFORMATION
  Report Type: 
  Country: None (occurrence: None)
  Receive Date: 20040623
  Receipt Date: 20040607
  Transmission Date: 20050107
  Serious: Yes (Hospitalization)
  Sender: FDA-Public Use
  Company Number: US_0406103527

PATIENT
  Age: 1 Day
  Sex: Male
  Weight: 3 kg

DRUGS (5)
  1. PROZAC [Suspect]
     Dates: start: 20030101
  2. TYLENOL [Concomitant]
  3. SYNTHROID [Concomitant]
  4. FLUOXETINE HYDROCHLORIDE [Concomitant]
  5. PRENATAL VITAMINS [Concomitant]

REACTIONS (7)
  - AGITATION NEONATAL [None]
  - DRUG EXPOSURE DURING PREGNANCY [None]
  - HYPOTONIA NEONATAL [None]
  - PREMATURE BABY [None]
  - RESPIRATORY RATE INCREASED [None]
  - TREMOR NEONATAL [None]
  - UMBILICAL CORD ABNORMALITY [None]
